FAERS Safety Report 13999039 (Version 1)
Quarter: 2017Q3

REPORT INFORMATION
  Report Type: Spontaneous
  Country: US (occurrence: US)
  Receive Date: 20170922
  Receipt Date: 20170922
  Transmission Date: 20171128
  Serious: No
  Sender: FDA-Public Use
  Company Number: None

PATIENT
  Age: 33 Year
  Sex: Female
  Weight: 63 kg

DRUGS (1)
  1. BUPRENORPHINE AND NALOXONE [Suspect]
     Active Substance: BUPRENORPHINE\NALOXONE
     Indication: DRUG DEPENDENCE
     Dosage: ?          QUANTITY:1.5 TABLET(S);?
     Route: 060
     Dates: start: 20170531, end: 20170922

REACTIONS (17)
  - Hyperhidrosis [None]
  - Depression [None]
  - Fatigue [None]
  - Headache [None]
  - Drug dependence [None]
  - Product substitution issue [None]
  - Abdominal pain upper [None]
  - Muscle spasms [None]
  - Asthenia [None]
  - Suicidal ideation [None]
  - Pain [None]
  - Emotional disorder [None]
  - Malaise [None]
  - Syncope [None]
  - Hot flush [None]
  - Mood altered [None]
  - Nausea [None]

NARRATIVE: CASE EVENT DATE: 20170831
